FAERS Safety Report 19180706 (Version 1)
Quarter: 2021Q2

REPORT INFORMATION
  Report Type: Spontaneous
  Country: US (occurrence: US)
  Receive Date: 20210426
  Receipt Date: 20210426
  Transmission Date: 20210717
  Serious: No
  Sender: FDA-Public Use
  Company Number: None

PATIENT
  Age: 60 Year
  Sex: Male
  Weight: 80.55 kg

DRUGS (4)
  1. NORMAL SALINE 250 [Concomitant]
     Dates: start: 20210423, end: 20210423
  2. GAMUNEX?C [Suspect]
     Active Substance: HUMAN IMMUNOGLOBULIN G
     Indication: CHRONIC INFLAMMATORY DEMYELINATING POLYRADICULONEUROPATHY
     Dosage: ?          OTHER FREQUENCY:Q2W;?
     Route: 042
     Dates: start: 20210423, end: 20210423
  3. ACETAMINOPHEN 650 [Concomitant]
     Dates: start: 20210423, end: 20210423
  4. DIPHENHYDRAMINE 50 MG [Concomitant]
     Dates: start: 20210423, end: 20210423

REACTIONS (2)
  - Urticaria [None]
  - Infusion related reaction [None]

NARRATIVE: CASE EVENT DATE: 20210423
